FAERS Safety Report 5419043-4 (Version None)
Quarter: 2007Q3

REPORT INFORMATION
  Report Type: 
  Country: None (occurrence: None)
  Receive Date: 20070820
  Receipt Date: 20070809
  Transmission Date: 20080115
  Serious: Yes (Other)
  Sender: FDA-Public Use
  Company Number: PHEH2007US04502

PATIENT
  Age: 53 Year
  Sex: Female
  Weight: 57.142 kg

DRUGS (5)
  1. ZELNORM [Suspect]
     Indication: IRRITABLE BOWEL SYNDROME
     Dosage: 6 MG, BID
     Dates: start: 20030101, end: 20070401
  2. PREDNISONE [Concomitant]
     Indication: TENDON DISORDER
  3. GLUCOSAMINE [Concomitant]
     Indication: ARTHRITIS
  4. SYNTHROID [Concomitant]
  5. CLONIDINE [Concomitant]

REACTIONS (9)
  - BLOOD POTASSIUM DECREASED [None]
  - BLOOD PRESSURE ORTHOSTATIC DECREASED [None]
  - DIZZINESS [None]
  - FATIGUE [None]
  - FEELING COLD [None]
  - HEADACHE [None]
  - HYPOAESTHESIA [None]
  - SYNCOPE VASOVAGAL [None]
  - TACHYCARDIA [None]
